FAERS Safety Report 7425652-3 (Version None)
Quarter: 2011Q2

REPORT INFORMATION
  Report Type: 
  Country: None (occurrence: None)
  Receive Date: 20110420
  Receipt Date: 20110413
  Transmission Date: 20111010
  Serious: Yes (Death, Other)
  Sender: FDA-Public Use
  Company Number: US-JNJFOC-20110200100

PATIENT
  Sex: Female

DRUGS (9)
  1. DOXORUBICIN HCL [Suspect]
     Dosage: HYPER CVAD CYCLE 1B
     Route: 042
  2. VINCRISTINE [Suspect]
     Indication: MANTLE CELL LYMPHOMA
     Route: 065
  3. RITUXIMAB [Suspect]
     Indication: MANTLE CELL LYMPHOMA
     Route: 065
  4. DEXAMETHASONE [Suspect]
     Indication: MANTLE CELL LYMPHOMA
     Route: 065
  5. CYCLOPHOSPHAMIDE [Suspect]
     Indication: MANTLE CELL LYMPHOMA
     Route: 065
  6. MESNA [Concomitant]
     Route: 065
  7. DOXORUBICIN HCL [Suspect]
     Dosage: HYPER CVAD CYCLE 1A
     Route: 042
  8. DOXORUBICIN HCL [Suspect]
     Indication: MANTLE CELL LYMPHOMA
     Dosage: CYCLE 2B
     Route: 042
  9. DOXORUBICIN HCL [Suspect]
     Dosage: CYCLE 2A
     Route: 042

REACTIONS (4)
  - RENAL FAILURE [None]
  - PNEUMOTHORAX [None]
  - PULMONARY OEDEMA [None]
  - PNEUMONIA [None]
